FAERS Safety Report 16651797 (Version 1)
Quarter: 2019Q3

REPORT INFORMATION
  Report Type: Spontaneous
  Country: US (occurrence: US)
  Receive Date: 20190730
  Receipt Date: 20190730
  Transmission Date: 20191004
  Serious: Yes (Other)
  Sender: FDA-Public Use
  Company Number: None

PATIENT
  Age: 63 Year
  Sex: Male

DRUGS (1)
  1. STELARA [Suspect]
     Active Substance: USTEKINUMAB
     Dates: start: 20190720, end: 20190721

REACTIONS (5)
  - Pain in extremity [None]
  - Chills [None]
  - Rash [None]
  - Pyrexia [None]
  - Swelling [None]

NARRATIVE: CASE EVENT DATE: 20190727
